FAERS Safety Report 20056412 (Version 1)
Quarter: 2021Q4

REPORT INFORMATION
  Report Type: Spontaneous
  Country: US (occurrence: US)
  Receive Date: 20211111
  Receipt Date: 20211111
  Transmission Date: 20220304
  Serious: No
  Sender: FDA-Public Use
  Company Number: US-AMGEN-USASP2021174706

PATIENT
  Age: 32 Year
  Sex: Female

DRUGS (2)
  1. EPOGEN [Suspect]
     Active Substance: ERYTHROPOIETIN
     Indication: Nephrogenic anaemia
     Dosage: 12000 INTERNATIONAL UNIT, Q3WK
     Route: 065
  2. EPOGEN [Suspect]
     Active Substance: ERYTHROPOIETIN
     Indication: End stage renal disease

REACTIONS (1)
  - Drug specific antibody present [Unknown]

NARRATIVE: CASE EVENT DATE: 20211008
